FAERS Safety Report 6027373-0 (Version None)
Quarter: 2009Q1

REPORT INFORMATION
  Report Type: 
  Country: None (occurrence: None)
  Receive Date: 20090105
  Receipt Date: 20081231
  Transmission Date: 20090719
  Serious: Yes (Other)
  Sender: FDA-Public Use
  Company Number: B0552411A

PATIENT
  Age: 35 Year
  Sex: Male

DRUGS (2)
  1. MALARONE [Suspect]
     Indication: DRUG USE FOR UNKNOWN INDICATION
     Dates: start: 20081223, end: 20081223
  2. ABSENOR [Concomitant]

REACTIONS (1)
  - GRAND MAL CONVULSION [None]
